FAERS Safety Report 6780216 (Version 2)
Quarter: 2014Q3

REPORT INFORMATION
  Report Type: Spontaneous
  Country: US (occurrence: None)
  Receive Date: 20080922
  Receipt Date: 20140812
  Transmission Date: 20150326
  Serious: Yes (Hospitalization, Other)
  Sender: FDA-Public Use
  Company Number: 2008S1009153

PATIENT
  Age: 60 Year
  Sex: Male
  Weight: 73 kg

DRUGS (7)
  1. COZAAR [Concomitant]
     Active Substance: LOSARTAN POTASSIUM
  2. ACIPHEX [Concomitant]
     Active Substance: RABEPRAZOLE SODIUM
  3. INSULIN (INSULIN) [Concomitant]
     Active Substance: INSULIN NOS
  4. PHOSPHO-SODA [Suspect]
     Active Substance: SODIUM PHOSPHATE, DIBASIC\SODIUM PHOSPHATE, MONOBASIC
     Indication: COLONOSCOPY
     Dosage: 2 IN 1 DAYS, ORAL
     Route: 048
     Dates: start: 20050106, end: 20050106
  5. PREVACID (LANSOPRZOLE) [Concomitant]
  6. BENICAR [Concomitant]
     Active Substance: OLMESARTAN MEDOXOMIL
  7. DARVOCET /00220901/ (PARACETAMOL, DEXTROPROPOXYPHENE HYDROCHLORIDE) [Concomitant]

REACTIONS (28)
  - Urine flow decreased [None]
  - Dialysis [None]
  - Fatigue [None]
  - Cardiac arrest [None]
  - Renal failure chronic [None]
  - Dehydration [None]
  - Pain [None]
  - Abasia [None]
  - Asthenia [None]
  - Anaemia [None]
  - Back pain [None]
  - Dysuria [None]
  - Nausea [None]
  - Renal tubular necrosis [None]
  - Haemodialysis [None]
  - Metabolic acidosis [None]
  - Depression [None]
  - Swelling [None]
  - Hypoxia [None]
  - Acute pulmonary oedema [None]
  - Renal failure acute [None]
  - Hallucination [None]
  - Acute respiratory failure [None]
  - Cardiac failure congestive [None]
  - Renal cyst [None]
  - Fluid overload [None]
  - Insomnia [None]
  - Chronic obstructive pulmonary disease [None]

NARRATIVE: CASE EVENT DATE: 20050125
